FAERS Safety Report 17772332 (Version 1)
Quarter: 2020Q2

REPORT INFORMATION
  Report Type: Spontaneous
  Country: US (occurrence: US)
  Receive Date: 20200512
  Receipt Date: 20200512
  Transmission Date: 20200714
  Serious: No
  Sender: FDA-Public Use
  Company Number: US-NOVOPROD-662213

PATIENT
  Age: 53 Year
  Sex: Female

DRUGS (2)
  1. NORDITROPIN [Suspect]
     Active Substance: SOMATROPIN
     Indication: PRODUCT USED FOR UNKNOWN INDICATION
     Dosage: 0.4 MG
     Route: 058
     Dates: start: 20181210, end: 20190110
  2. NORDITROPIN [Suspect]
     Active Substance: SOMATROPIN
     Dosage: 0.2 MG
     Route: 058
     Dates: start: 20190124, end: 20190201

REACTIONS (2)
  - Eye disorder [Recovered/Resolved]
  - Hypersensitivity [Recovered/Resolved]

NARRATIVE: CASE EVENT DATE: 201812
